FAERS Safety Report 4378432-X (Version None)
Quarter: 2004Q2

REPORT INFORMATION
  Report Type: 
  Country: None (occurrence: None)
  Receive Date: 20040609
  Receipt Date: 20040531
  Transmission Date: 20050107
  Serious: Yes (Hospitalization)
  Sender: FDA-Public Use
  Company Number: 2004216087JP

PATIENT
  Age: 80 Year
  Sex: Female

DRUGS (2)
  1. CABASER (CABERGOLINE)  TABLET, 1-4MG [Suspect]
     Indication: HYPERLIPIDAEMIA
     Dosage: ORAL
     Route: 048
  2. LEVODOPA [Concomitant]

REACTIONS (2)
  - PERICARDIAL EFFUSION [None]
  - PERICARDITIS [None]
